FAERS Safety Report 24820234 (Version 1)
Quarter: 2025Q1

REPORT INFORMATION
  Report Type: Spontaneous
  Country: US (occurrence: US)
  Receive Date: 20250108
  Receipt Date: 20250108
  Transmission Date: 20250408
  Serious: No
  Sender: FERRING
  Company Number: US-FERRINGPH-2024FE05387

PATIENT
  Age: 77 Year
  Sex: Female
  Weight: 81.633 kg

DRUGS (2)
  1. ADSTILADRIN [Suspect]
     Active Substance: NADOFARAGENE FIRADENOVEC-VNCG
     Indication: Product used for unknown indication
     Route: 065
     Dates: start: 20240918, end: 20240918
  2. OXYBUTYNIN [Concomitant]
     Active Substance: OXYBUTYNIN
     Indication: Product used for unknown indication
     Route: 065
     Dates: start: 20240918

REACTIONS (2)
  - Bladder spasm [Unknown]
  - Instillation site discharge [Unknown]

NARRATIVE: CASE EVENT DATE: 20240918
